FAERS Safety Report 10926426 (Version 3)
Quarter: 2015Q4

REPORT INFORMATION
  Report Type: Spontaneous
  Country: JP (occurrence: JP)
  Receive Date: 20150318
  Receipt Date: 20151105
  Transmission Date: 20160304
  Serious: Yes (Death)
  Sender: FDA-Public Use
  Company Number: PHJP2015JP003211

PATIENT
  Age: 78 Year
  Sex: Male
  Weight: 58 kg

DRUGS (4)
  1. LOXONIN [Suspect]
     Active Substance: LOXOPROFEN SODIUM
     Indication: PAIN
     Dosage: 60 MG, BID
     Route: 048
     Dates: start: 20120914, end: 20130125
  2. ALLOZYM [Suspect]
     Active Substance: ALLOPURINOL
     Indication: HYPERURICAEMIA
     Dosage: 100 MG, QD
     Route: 048
     Dates: start: 20120106, end: 20130125
  3. GOSYAZINKIGAN [Suspect]
     Active Substance: HERBALS
     Indication: HYPOAESTHESIA
     Dosage: 2.5 G, BID
     Route: 048
     Dates: start: 20121116, end: 20130111
  4. VOLTAREN [Suspect]
     Active Substance: DICLOFENAC SODIUM
     Indication: BACK PAIN
     Dosage: 37.5 MG, QD
     Route: 048
     Dates: start: 20111028, end: 20130125

REACTIONS (1)
  - Interstitial lung disease [Fatal]

NARRATIVE: CASE EVENT DATE: 20130204
